FAERS Safety Report 9757859 (Version 7)
Quarter: 2020Q3

REPORT INFORMATION
  Report Type: Report from Study
  Country: PL (occurrence: PL)
  Receive Date: 20131216
  Receipt Date: 20140528
  Transmission Date: 20201105
  Serious: Yes (Hospitalization)
  Sender: FDA-Public Use
  Company Number: PL-JNJFOC-20131207904

PATIENT
  Age: 27 Year
  Sex: Male
  Weight: 68 kg

DRUGS (22)
  1. CIPROPOL [Concomitant]
     Route: 048
     Dates: start: 20110622, end: 20110706
  2. DUSPATALIN RETARD [Concomitant]
     Route: 048
     Dates: start: 20130109, end: 20130205
  3. POLPRAZOL [Concomitant]
     Active Substance: OMEPRAZOLE
     Route: 048
     Dates: start: 20140303
  4. ASAMAX [Concomitant]
     Indication: COLITIS ULCERATIVE
     Route: 048
     Dates: start: 200907
  5. SIMPONI [Suspect]
     Active Substance: GOLIMUMAB
     Indication: COLITIS ULCERATIVE
     Route: 058
     Dates: start: 20100609
  6. HEVIRAN [Concomitant]
     Route: 048
     Dates: start: 20140303
  7. FLUKONAZOL [Concomitant]
     Route: 048
     Dates: start: 19960303
  8. SOLU?MEDROL [Concomitant]
     Active Substance: METHYLPREDNISOLONE SODIUM SUCCINATE
     Indication: COLITIS ULCERATIVE
     Route: 042
     Dates: start: 20130712, end: 20130717
  9. AFOBAM [Concomitant]
     Route: 048
     Dates: start: 20130109, end: 20130205
  10. ASA [Concomitant]
     Active Substance: ASPIRIN
     Route: 048
  11. MESALAZINE [Concomitant]
     Active Substance: MESALAMINE
     Route: 048
  12. SIMPONI [Suspect]
     Active Substance: GOLIMUMAB
     Indication: COLITIS ULCERATIVE
     Route: 058
     Dates: start: 20130821, end: 20130821
  13. TRIDERM (BETAMETHASONE, CLOTRIMAZOLE, GENTAMICIN) [Concomitant]
     Route: 061
     Dates: start: 20120510, end: 20120516
  14. ENCORTON [Concomitant]
     Active Substance: PREDNISONE
     Indication: COLITIS ULCERATIVE
     Route: 048
     Dates: start: 20130504, end: 20130711
  15. ABVD CHEMOTHERAPY [Concomitant]
     Route: 042
     Dates: start: 20140303
  16. BISEPTOL [Concomitant]
     Active Substance: SULFAMETHOXAZOLE\TRIMETHOPRIM
     Route: 048
     Dates: start: 20140303
  17. IMURAN [Concomitant]
     Active Substance: AZATHIOPRINE
     Indication: COLITIS ULCERATIVE
     Route: 048
     Dates: start: 20131018
  18. PREDNISONE. [Concomitant]
     Active Substance: PREDNISONE
     Route: 048
  19. TRITACE [Concomitant]
     Active Substance: RAMIPRIL
     Route: 048
     Dates: start: 20140303
  20. ZARZIO [Concomitant]
     Active Substance: FILGRASTIM
     Route: 058
     Dates: start: 20140317
  21. MILURIT [Concomitant]
     Active Substance: ALLOPURINOL
     Route: 048
     Dates: start: 20140317
  22. ENCORTON [Concomitant]
     Active Substance: PREDNISONE
     Indication: COLITIS ULCERATIVE
     Route: 048
     Dates: start: 20130718, end: 2013

REACTIONS (1)
  - Colitis ulcerative [Recovered/Resolved]

NARRATIVE: CASE EVENT DATE: 20131017
